FAERS Safety Report 9167763 (Version 1)
Quarter: 2013Q1

REPORT INFORMATION
  Report Type: Spontaneous
  Country: GB (occurrence: None)
  Receive Date: 20130307
  Receipt Date: 20130307
  Transmission Date: 20140127
  Serious: Yes (Other)
  Sender: FDA-Public Use
  Company Number: 2013-03139

PATIENT
  Age: 78 Year
  Sex: Female

DRUGS (6)
  1. LOSARTAN POTASSIUM [Suspect]
     Indication: HYPERTENSION
     Route: 048
     Dates: start: 20130123, end: 20130124
  2. LEVOTHYROXINE [Concomitant]
  3. SIMVASTATIN [Concomitant]
  4. ASPIRIN (ACETYLSALICYLIC ACID) [Concomitant]
  5. PERINDOPRIL [Concomitant]
  6. BENDROFLUMETHIAZIDE [Concomitant]

REACTIONS (10)
  - Epistaxis [None]
  - Dyspnoea [None]
  - Palpitations [None]
  - Chills [None]
  - Hypertension [None]
  - Dizziness [None]
  - Asthenia [None]
  - Dysstasia [None]
  - Malaise [None]
  - Drug prescribing error [None]
